FAERS Safety Report 11410512 (Version 2)
Quarter: 2015Q4

REPORT INFORMATION
  Report Type: Spontaneous
  Country: US (occurrence: US)
  Receive Date: 20150824
  Receipt Date: 20151009
  Transmission Date: 20160304
  Serious: No
  Sender: FDA-Public Use
  Company Number: US-PFIZER INC-2015268930

PATIENT
  Sex: Female
  Weight: 64 kg

DRUGS (8)
  1. TYLENOL EXTRA STRENGTH [Concomitant]
     Active Substance: ACETAMINOPHEN
     Indication: HEADACHE
     Dosage: 2 TABLETS BY MOUTH, AS NEEDED
     Route: 048
  2. ALLEGRA-D [Concomitant]
     Active Substance: FEXOFENADINE\PSEUDOEPHEDRINE
     Indication: SEASONAL ALLERGY
     Dosage: 1 DF CAPSULE, 1 TABLET EVERY 12 HOURS, 2X/DAY AS NEEDED
  3. FIORINAL WITH CODEINE [Concomitant]
     Active Substance: ASPIRIN\BUTALBITAL\CAFFEINE\CODEINE PHOSPHATE
     Indication: MIGRAINE
     Dosage: 30 MG CAPSULE, EVERY 6 HOURS BY MOUTH AS NEEDED
     Route: 048
  4. CELEBREX [Concomitant]
     Active Substance: CELECOXIB
     Indication: ARTHRITIS
     Dosage: 100 MG CAPSULE BY MOUTH 1X/DAY, AS NEEDED
     Route: 048
  5. PHENYTOIN SODIUM. [Suspect]
     Active Substance: PHENYTOIN SODIUM
     Indication: PETIT MAL EPILEPSY
     Dosage: UNK
  6. ALLEGRA-D [Concomitant]
     Active Substance: FEXOFENADINE\PSEUDOEPHEDRINE
     Indication: HYPERSENSITIVITY
  7. GABAPENTIN. [Concomitant]
     Active Substance: GABAPENTIN
     Indication: NEUROPATHY PERIPHERAL
     Dosage: 100 MG CAPSULE BY MOUTH, 3X/DAY
     Route: 048
  8. PRIMIDONE. [Concomitant]
     Active Substance: PRIMIDONE
     Indication: SEIZURE
     Dosage: 250 MG TABLET, 1 TAB, 2X/DAY

REACTIONS (2)
  - Hypersensitivity [Unknown]
  - Migraine [Unknown]
